FAERS Safety Report 22532848 (Version 1)
Quarter: 2023Q2

REPORT INFORMATION
  Report Type: Spontaneous
  Country: IT (occurrence: IT)
  Receive Date: 20230607
  Receipt Date: 20230607
  Transmission Date: 20230721
  Serious: Yes (Hospitalization)
  Sender: FDA-Public Use
  Company Number: IT-MINISAL02-574596

PATIENT
  Age: 59 Year
  Sex: Female

DRUGS (3)
  1. QUETIAPINE FUMARATE [Suspect]
     Active Substance: QUETIAPINE FUMARATE
     Indication: Intentional overdose
     Dosage: 400 MG, (TOTAL)
     Route: 048
     Dates: start: 20190820, end: 20190820
  2. DELORAZEPAM [Suspect]
     Active Substance: DELORAZEPAM
     Indication: Intentional overdose
     Dosage: 20 MG, (TOTAL)
     Route: 048
     Dates: start: 20190820, end: 20190820
  3. VENLAFAXINE HYDROCHLORIDE [Concomitant]
     Active Substance: VENLAFAXINE HYDROCHLORIDE
     Indication: Product used for unknown indication
     Dosage: 75 MG
     Route: 048

REACTIONS (3)
  - Sopor [Recovered/Resolved]
  - Cyanosis [Recovered/Resolved]
  - Drug abuse [Recovered/Resolved]

NARRATIVE: CASE EVENT DATE: 20190820
